FAERS Safety Report 10311240 (Version 1)
Quarter: 2014Q3

REPORT INFORMATION
  Report Type: Spontaneous
  Country: PL (occurrence: PL)
  Receive Date: 20140717
  Receipt Date: 20140717
  Transmission Date: 20150326
  Serious: Yes (Hospitalization)
  Sender: FDA-Public Use
  Company Number: CHPA2014PL009460

PATIENT
  Age: 15 Year
  Sex: Male

DRUGS (1)
  1. DEXTROMETHORPHAN UNKNOWN [Suspect]
     Active Substance: DEXTROMETHORPHAN
     Dosage: 390 MG, UNK

REACTIONS (4)
  - Toxicity to various agents [Recovered/Resolved]
  - Dysphemia [Recovered/Resolved]
  - Mental impairment [Recovered/Resolved]
  - Mydriasis [Recovered/Resolved]
